FAERS Safety Report 14738396 (Version 1)
Quarter: 2018Q2

REPORT INFORMATION
  Report Type: Spontaneous
  Country: DE (occurrence: DE)
  Receive Date: 20180409
  Receipt Date: 20180409
  Transmission Date: 20180711
  Serious: Yes (Hospitalization, Other)
  Sender: FDA-Public Use
  Company Number: DE-009507513-1802DEU012746

PATIENT
  Age: 63 Year
  Sex: Male

DRUGS (7)
  1. PANTOPRAZOLE [Concomitant]
     Active Substance: PANTOPRAZOLE
     Dosage: 40 MG 50
  2. KEYTRUDA [Suspect]
     Active Substance: PEMBROLIZUMAB
     Indication: NON-SMALL CELL LUNG CANCER
     Dosage: EVERY 22 DAYS
     Dates: start: 20171219, end: 20180130
  3. KEPPRA [Concomitant]
     Active Substance: LEVETIRACETAM
  4. NOVAMIN (AMINO ACIDS (UNSPECIFIED)) [Concomitant]
  5. KEYTRUDA [Suspect]
     Active Substance: PEMBROLIZUMAB
     Indication: ADENOCARCINOMA
  6. RAMIPRIL. [Concomitant]
     Active Substance: RAMIPRIL
  7. VITAMIN B (UNSPECIFIED) [Concomitant]
     Active Substance: VITAMIN B

REACTIONS (4)
  - Epilepsy [Unknown]
  - Malignant neoplasm progression [Unknown]
  - Autoimmune hepatitis [Recovering/Resolving]
  - Inappropriate schedule of drug administration [Unknown]

NARRATIVE: CASE EVENT DATE: 201801
